FAERS Safety Report 12818537 (Version 1)
Quarter: 2016Q4

REPORT INFORMATION
  Report Type: Spontaneous
  Country: FR (occurrence: FR)
  Receive Date: 20161006
  Receipt Date: 20161006
  Transmission Date: 20170207
  Serious: Yes (Other)
  Sender: FDA-Public Use
  Company Number: FR-AUROBINDO-AUR-APL-2016-04492

PATIENT
  Sex: Female

DRUGS (3)
  1. DAFALGAN [Concomitant]
     Active Substance: ACETAMINOPHEN
     Indication: PRODUCT USED FOR UNKNOWN INDICATION
     Dosage: 1 G, 3 TIMES A DAY
     Route: 048
  2. MUXOL                              /00546002/ [Concomitant]
     Indication: PRODUCT USED FOR UNKNOWN INDICATION
     Dosage: TWO TIMES A DAY
     Route: 048
  3. CEFUROXIME ARROW FILM-COATED TABLET 500 MG [Suspect]
     Active Substance: CEFUROXIME
     Indication: SINUSITIS
     Dosage: 500 MG, TWO TIMES A DAY
     Route: 048
     Dates: start: 20160323, end: 20160324

REACTIONS (6)
  - Laryngeal pain [Unknown]
  - Product physical consistency issue [None]
  - Product physical issue [Not Recovered/Not Resolved]
  - Treatment noncompliance [Unknown]
  - Choking sensation [Recovered/Resolved]
  - Product difficult to swallow [Not Recovered/Not Resolved]
